FAERS Safety Report 9112206 (Version 2)
Quarter: 2014Q1

REPORT INFORMATION
  Report Type: Spontaneous
  Country: US (occurrence: US)
  Receive Date: 20130219
  Receipt Date: 20140213
  Transmission Date: 20141002
  Serious: No
  Sender: FDA-Public Use
  Company Number: US-BRISTOL-MYERS SQUIBB COMPANY-17042938

PATIENT
  Age: 42 Year
  Sex: Female
  Weight: 104.31 kg

DRUGS (3)
  1. ABATACEPT SUBQ INJECTION 125MG/ML [Suspect]
     Indication: RHEUMATOID ARTHRITIS
     Dosage: LAST INJ: 8OCT12 LOT 2H62381 MAR14
     Route: 058
  2. VITAMIN B12 [Concomitant]
     Indication: ANAEMIA
  3. IRON [Concomitant]
     Indication: ANAEMIA

REACTIONS (3)
  - Nausea [Unknown]
  - Injection site reaction [Unknown]
  - Drug administration error [Unknown]
